FAERS Safety Report 21519662 (Version 1)
Quarter: 2022Q4

REPORT INFORMATION
  Report Type: Spontaneous
  Country: GB (occurrence: GB)
  Receive Date: 20221028
  Receipt Date: 20221028
  Transmission Date: 20230112
  Serious: Yes (Other)
  Sender: FDA-Public Use
  Company Number: None

PATIENT
  Age: 47 Year
  Sex: Female
  Weight: 85 kg

DRUGS (4)
  1. AMITRIPTYLINE [Suspect]
     Active Substance: AMITRIPTYLINE
     Indication: Insomnia
  2. IBUPROFEN [Concomitant]
     Active Substance: IBUPROFEN
     Dosage: WITH OR AFTER FOOD
     Dates: start: 20220215
  3. ACETAMINOPHEN [Concomitant]
     Active Substance: ACETAMINOPHEN
     Dosage: AS NECESSARY, TAKE 1-2 TABLETS EVERY 4-6 HOURS
     Dates: start: 20180403
  4. RAMIPRIL [Concomitant]
     Active Substance: RAMIPRIL
     Dates: start: 20201222

REACTIONS (1)
  - Dermatitis bullous [Unknown]
